FAERS Safety Report 5399356-5 (Version None)
Quarter: 2007Q3

REPORT INFORMATION
  Report Type: 
  Country: None (occurrence: None)
  Receive Date: 20070727
  Receipt Date: 20070718
  Transmission Date: 20080115
  Serious: Yes (Other)
  Sender: FDA-Public Use
  Company Number: US-ROCHE-507529

PATIENT
  Age: 65 Year
  Sex: Female

DRUGS (5)
  1. BONIVA [Suspect]
     Indication: OSTEOPOROSIS
     Route: 048
     Dates: start: 20060201, end: 20070201
  2. SINGULAIR [Concomitant]
  3. ZYRTEC [Concomitant]
  4. PRAVASTATIN [Concomitant]
  5. ADVAIR DISKUS 100/50 [Concomitant]

REACTIONS (4)
  - BLOOD CREATINE INCREASED [None]
  - BLOOD TRIGLYCERIDES INCREASED [None]
  - HYPERCALCAEMIA [None]
  - RENAL FAILURE ACUTE [None]
